FAERS Safety Report 12466289 (Version 1)
Quarter: 2016Q2

REPORT INFORMATION
  Report Type: Spontaneous
  Country: AT (occurrence: AT)
  Receive Date: 20160614
  Receipt Date: 20160614
  Transmission Date: 20160815
  Serious: Yes (Hospitalization, Other)
  Sender: FDA-Public Use
  Company Number: AT-AMGEN-AUTSP2016074582

PATIENT
  Age: 44 Year
  Sex: Female
  Weight: 61.5 kg

DRUGS (2)
  1. ENBREL [Suspect]
     Active Substance: ETANERCEPT
     Indication: ANKYLOSING SPONDYLITIS
     Dosage: 50 MG, WEEKLY, SINCE YEARS
     Route: 065
  2. XEFO [Suspect]
     Active Substance: LORNOXICAM
     Indication: PAIN
     Dosage: 2-3 DF PER WEEK
     Route: 065

REACTIONS (1)
  - Paget^s disease of nipple [Unknown]

NARRATIVE: CASE EVENT DATE: 201604
